FAERS Safety Report 4477381-6 (Version None)
Quarter: 2004Q4

REPORT INFORMATION
  Report Type: 
  Country: None (occurrence: None)
  Receive Date: 20041013
  Receipt Date: 20040930
  Transmission Date: 20050328
  Serious: Yes (Hospitalization, Other)
  Sender: FDA-Public Use
  Company Number: 2004067372

PATIENT
  Age: 54 Year
  Sex: Male

DRUGS (3)
  1. LIPITOR [Suspect]
     Indication: HYPERCHOLESTEROLAEMIA
     Dosage: 10 MG (10MG, 1 IN 1 D), ORAL
     Route: 048
     Dates: start: 20030101, end: 20040117
  2. LISINOPRIL [Concomitant]
  3. BENZBROMARONE (BENZBROMARONE) [Concomitant]

REACTIONS (10)
  - ALANINE AMINOTRANSFERASE INCREASED [None]
  - ASPARTATE AMINOTRANSFERASE INCREASED [None]
  - BLOOD LACTATE DEHYDROGENASE INCREASED [None]
  - FACE OEDEMA [None]
  - GAMMA-GLUTAMYLTRANSFERASE INCREASED [None]
  - HIGH DENSITY LIPOPROTEIN INCREASED [None]
  - LIVER DISORDER [None]
  - PERICARDIAL EFFUSION [None]
  - PRIMARY HYPOTHYROIDISM [None]
  - RHABDOMYOLYSIS [None]
